FAERS Safety Report 11386448 (Version 1)
Quarter: 2015Q3

REPORT INFORMATION
  Report Type: Spontaneous
  Country: US (occurrence: None)
  Receive Date: 20150813
  Receipt Date: 20150813
  Transmission Date: 20151125
  Serious: Yes (Other)
  Sender: FDA-Public Use
  Company Number: None

PATIENT
  Age: 47 Year
  Sex: Male

DRUGS (2)
  1. RIBAVIRIN TABLET 200MG AUROBINDO [Suspect]
     Active Substance: RIBAVIRIN
     Indication: HEPATITIS C
     Route: 048
     Dates: start: 20150803, end: 20150812
  2. SOVALDI [Suspect]
     Active Substance: SOFOSBUVIR
     Indication: HEPATITIS C
     Route: 048
     Dates: start: 20150803, end: 20150812

REACTIONS (4)
  - Diarrhoea [None]
  - Headache [None]
  - Fatigue [None]
  - Pruritus [None]

NARRATIVE: CASE EVENT DATE: 20150806
